FAERS Safety Report 6589528-6 (Version None)
Quarter: 2010Q1

REPORT INFORMATION
  Report Type: 
  Country: None (occurrence: None)
  Receive Date: 20100212
  Receipt Date: 20100202
  Transmission Date: 20100710
  Serious: Yes (Death)
  Sender: FDA-Public Use
  Company Number: MSTR-NO-1002S-0062

PATIENT
  Age: 75 Year
  Sex: Female

DRUGS (1)
  1. METASTRON [Suspect]
     Indication: METASTATIC PAIN
     Dosage: SINGLE DOSE, I.V.
     Route: 042
     Dates: start: 20091222, end: 20091222

REACTIONS (4)
  - FALL [None]
  - HEAD INJURY [None]
  - PLATELET COUNT DECREASED [None]
  - SUBDURAL HAEMORRHAGE [None]
